FAERS Safety Report 21992093 (Version 2)
Quarter: 2023Q1

REPORT INFORMATION
  Report Type: Spontaneous
  Country: JP (occurrence: JP)
  Receive Date: 20230214
  Receipt Date: 20230309
  Transmission Date: 20230418
  Serious: Yes (Other)
  Sender: FDA-Public Use
  Company Number: JP-BEH-2023154317

PATIENT
  Age: 8 Year
  Sex: Male
  Weight: 20 kg

DRUGS (6)
  1. IDELVION [Suspect]
     Active Substance: COAGULATION FACTOR IX RECOMBINANT HUMAN
     Indication: Factor IX deficiency
     Dosage: 1500 INTERNATIONAL UNIT, QOW
     Route: 042
     Dates: start: 20220301, end: 20221101
  2. IDELVION [Suspect]
     Active Substance: COAGULATION FACTOR IX RECOMBINANT HUMAN
     Indication: Factor IX deficiency
     Dosage: 1500 INTERNATIONAL UNIT, QOW
     Route: 042
     Dates: start: 20220301, end: 20221101
  3. IDELVION [Suspect]
     Active Substance: COAGULATION FACTOR IX RECOMBINANT HUMAN
     Indication: Prophylaxis
     Dosage: 1500 INTERNATIONAL UNIT, QOW
     Route: 042
     Dates: start: 20220301, end: 20221101
  4. IDELVION [Suspect]
     Active Substance: COAGULATION FACTOR IX RECOMBINANT HUMAN
     Indication: Prophylaxis
     Dosage: 1500 INTERNATIONAL UNIT, QOW
     Route: 042
     Dates: start: 20220301, end: 20221101
  5. IDELVION [Suspect]
     Active Substance: COAGULATION FACTOR IX RECOMBINANT HUMAN
     Dosage: 1500 INTERNATIONAL UNIT, QOW
     Route: 042
     Dates: start: 20220301, end: 20221101
  6. IDELVION [Suspect]
     Active Substance: COAGULATION FACTOR IX RECOMBINANT HUMAN
     Dosage: 1500 INTERNATIONAL UNIT, QOW
     Route: 042
     Dates: start: 20220301, end: 20221101

REACTIONS (5)
  - Drug ineffective [Unknown]
  - Haemorrhage urinary tract [Unknown]
  - Haematuria [Unknown]
  - Contusion [Unknown]
  - Haemorrhage subcutaneous [Recovered/Resolved]

NARRATIVE: CASE EVENT DATE: 20221001
